FAERS Safety Report 21158384 (Version 1)
Quarter: 2022Q3

REPORT INFORMATION
  Report Type: Spontaneous
  Country: JP (occurrence: JP)
  Receive Date: 20220801
  Receipt Date: 20220801
  Transmission Date: 20221026
  Serious: Yes (Other)
  Sender: FDA-Public Use
  Company Number: JP-ANIPHARMA-2022-JP-000317

PATIENT
  Age: 70 Year
  Sex: Male

DRUGS (1)
  1. BEXAROTENE [Suspect]
     Active Substance: BEXAROTENE
     Indication: Cutaneous T-cell lymphoma
     Dosage: 300 MG/SQUARE-METER
     Route: 048

REACTIONS (3)
  - Drug eruption [Recovered/Resolved]
  - Eosinophilia [Recovered/Resolved]
  - Lymphocytic infiltration [Recovered/Resolved]
